FAERS Safety Report 5675709-2 (Version None)
Quarter: 2008Q1

REPORT INFORMATION
  Report Type: 
  Country: None (occurrence: None)
  Receive Date: 20080321
  Receipt Date: 20080313
  Transmission Date: 20080703
  Serious: Yes (Hospitalization)
  Sender: FDA-Public Use
  Company Number: PHEH2008US02809

PATIENT
  Age: 67 Year
  Sex: Female

DRUGS (1)
  1. RECLAST [Suspect]
     Indication: OSTEOPOROSIS POSTMENOPAUSAL
     Dosage: 5 MG, ONCE/SINGLE
     Route: 042
     Dates: start: 20080307

REACTIONS (5)
  - DEHYDRATION [None]
  - DIARRHOEA [None]
  - INFLUENZA LIKE ILLNESS [None]
  - LABORATORY TEST ABNORMAL [None]
  - NAUSEA [None]
